FAERS Safety Report 6856153-9 (Version None)
Quarter: 2010Q3

REPORT INFORMATION
  Report Type: 
  Country: None (occurrence: None)
  Receive Date: 20100719
  Receipt Date: 20100707
  Transmission Date: 20110219
  Serious: Yes (Hospitalization, Other)
  Sender: FDA-Public Use
  Company Number: PHHY2010FR45218

PATIENT
  Age: 38 Year
  Sex: Male

DRUGS (1)
  1. RITALIN [Suspect]
     Dosage: UNK

REACTIONS (5)
  - DECREASED APPETITE [None]
  - DRUG ABUSE [None]
  - HYPOMANIA [None]
  - LOGORRHOEA [None]
  - TACHYPHRENIA [None]
